FAERS Safety Report 7490249-6 (Version None)
Quarter: 2011Q2

REPORT INFORMATION
  Report Type: 
  Country: None (occurrence: None)
  Receive Date: 20110517
  Receipt Date: 20110517
  Transmission Date: 20111010
  Serious: Yes (Hospitalization)
  Sender: FDA-Public Use
  Company Number: None

PATIENT
  Age: 61 Year
  Sex: Male
  Weight: 93 kg

DRUGS (1)
  1. NAPROXEN [Suspect]
     Indication: PAIN
     Dosage: 500 MG BID PO
     Route: 048
     Dates: start: 20101108, end: 20101116

REACTIONS (4)
  - PURPURA [None]
  - RASH [None]
  - THROMBOCYTOPENIA [None]
  - HAEMORRHAGE [None]
